FAERS Safety Report 23252456 (Version 1)
Quarter: 2023Q4

REPORT INFORMATION
  Report Type: Spontaneous
  Country: IT (occurrence: IT)
  Receive Date: 20231201
  Receipt Date: 20231201
  Transmission Date: 20240109
  Serious: Yes (Other)
  Sender: FDA-Public Use
  Company Number: IT-MYLANLABS-2023M1126222

PATIENT
  Age: 55 Year
  Sex: Female

DRUGS (4)
  1. CLOZAPINE [Suspect]
     Active Substance: CLOZAPINE
     Indication: Product used for unknown indication
     Dosage: UNK
     Route: 065
  2. HALDOL [Concomitant]
     Active Substance: HALOPERIDOL
     Dosage: UNK
     Route: 065
  3. BISOPROLOL FUMARATE [Concomitant]
     Active Substance: BISOPROLOL FUMARATE
     Indication: Cardiac disorder
     Dosage: 1.25 MILLIGRAM, ONCE
     Route: 065
  4. Tavor [Concomitant]
     Indication: Insomnia
     Dosage: 2.5 MILLIGRAM
     Route: 065

REACTIONS (4)
  - Syncope [Unknown]
  - Adverse event [Unknown]
  - Illness [Unknown]
  - Platelet count decreased [Unknown]
